FAERS Safety Report 5806504-9 (Version None)
Quarter: 2008Q3

REPORT INFORMATION
  Report Type: 
  Country: None (occurrence: None)
  Receive Date: 20080710
  Receipt Date: 20080702
  Transmission Date: 20090109
  Serious: Yes (Other)
  Sender: FDA-Public Use
  Company Number: US-PFIZER INC-2008056049

PATIENT
  Sex: Female
  Weight: 72.727 kg

DRUGS (7)
  1. CELEBREX [Suspect]
     Indication: BACK PAIN
  2. LEVAQUIN [Suspect]
  3. XANAX [Concomitant]
     Dosage: DAILY DOSE:.5MG
  4. TOPROL-XL [Concomitant]
     Dosage: DAILY DOSE:80MG
  5. MICARDIS [Concomitant]
     Dosage: DAILY DOSE:80MG
  6. PREMARIN [Concomitant]
     Dosage: DAILY DOSE:.625MG
  7. SYNTHROID [Concomitant]
     Dosage: DAILY DOSE:.088MG

REACTIONS (5)
  - FAECES DISCOLOURED [None]
  - HAEMATEMESIS [None]
  - NEOPLASM [None]
  - SKIN DISCOLOURATION [None]
  - WEIGHT DECREASED [None]
